FAERS Safety Report 16060203 (Version 2)
Quarter: 2019Q2

REPORT INFORMATION
  Report Type: Spontaneous
  Country: US (occurrence: US)
  Receive Date: 20190312
  Receipt Date: 20190514
  Transmission Date: 20190711
  Serious: No
  Sender: FDA-Public Use
  Company Number: US-SHIRE-US201908157

PATIENT
  Age: 76 Year
  Sex: Female
  Weight: 68.03 kg

DRUGS (3)
  1. XIIDRA [Suspect]
     Active Substance: LIFITEGRAST
     Dosage: 1 GTT DROPS, 2X/DAY:BID
     Route: 047
     Dates: start: 20190304, end: 20190315
  2. XIIDRA [Suspect]
     Active Substance: LIFITEGRAST
     Indication: PRODUCT USED FOR UNKNOWN INDICATION
     Dosage: 1 GTT DROPS, 2X/DAY:BID
     Route: 047
     Dates: start: 201903, end: 20190304
  3. ARTIFICIAL TEARS [Concomitant]
     Active Substance: GLYCERIN\HYPROMELLOSES\POLYETHYLENE GLYCOL 400
     Indication: PRODUCT USED FOR UNKNOWN INDICATION

REACTIONS (5)
  - Instillation site swelling [Recovered/Resolved]
  - Eyelid margin crusting [Recovered/Resolved]
  - Instillation site pain [Unknown]
  - Instillation site lacrimation [Recovered/Resolved]
  - Instillation site irritation [Recovered/Resolved]

NARRATIVE: CASE EVENT DATE: 201903
